FAERS Safety Report 24669390 (Version 1)
Quarter: 2024Q4

REPORT INFORMATION
  Report Type: Spontaneous
  Country: US (occurrence: US)
  Receive Date: 20241127
  Receipt Date: 20241127
  Transmission Date: 20250115
  Serious: No
  Sender: TARO
  Company Number: US-TARO PHARMACEUTICALS USA INC.-2024TAR00038

PATIENT

DRUGS (1)
  1. CLOBETASOL PROPIONATE [Suspect]
     Active Substance: CLOBETASOL PROPIONATE
     Indication: Pruritus
     Dosage: OD, APPLY TO DRY SCALP AT BEDTIME FOR 2 WEEKS AND THEN AS NEEDED FOR FLARE UPS,ONCE DAILY AT BEDTIME
     Route: 061

REACTIONS (3)
  - Application site pain [Unknown]
  - Skin burning sensation [Unknown]
  - Product quality issue [Unknown]
